FAERS Safety Report 6643906-5 (Version None)
Quarter: 2010Q1

REPORT INFORMATION
  Report Type: 
  Country: None (occurrence: None)
  Receive Date: 20100317
  Receipt Date: 20100302
  Transmission Date: 20100710
  Serious: Yes (Other)
  Sender: FDA-Public Use
  Company Number: PHHY2008CN06492

PATIENT
  Age: 40 Year
  Sex: Male

DRUGS (1)
  1. VISUDYNE [Suspect]
     Indication: CHORIORETINOPATHY
     Dates: start: 20080407, end: 20080407

REACTIONS (5)
  - CONDITION AGGRAVATED [None]
  - NAIL DISCOLOURATION [None]
  - PSORIASIS [None]
  - RASH GENERALISED [None]
  - SKIN EXFOLIATION [None]
